FAERS Safety Report 12189060 (Version 1)
Quarter: 2016Q1

REPORT INFORMATION
  Report Type: Spontaneous
  Country: CH (occurrence: CH)
  Receive Date: 20160317
  Receipt Date: 20160317
  Transmission Date: 20160526
  Serious: Yes (Hospitalization)
  Sender: FDA-Public Use
  Company Number: PHHY2016CH032480

PATIENT

DRUGS (4)
  1. MINALGIN [Suspect]
     Active Substance: METAMIZOLE
     Indication: TONSILLITIS
     Dosage: 1 G, QID
     Route: 042
     Dates: start: 20160219, end: 20160220
  2. CEFUROXIME SANDOZ [Suspect]
     Active Substance: CEFUROXIME
     Indication: TONSILLITIS
     Route: 048
     Dates: start: 20160218, end: 20160218
  3. NOVALGIN [Suspect]
     Active Substance: METAMIZOLE SODIUM
     Indication: BACK PAIN
     Route: 048
     Dates: start: 201512, end: 20160219
  4. DAFALGAN [Suspect]
     Active Substance: ACETAMINOPHEN
     Indication: TONSILLITIS
     Route: 048

REACTIONS (3)
  - Anaemia [Not Recovered/Not Resolved]
  - Agranulocytosis [Recovered/Resolved]
  - Thrombocytopenia [Recovered/Resolved]

NARRATIVE: CASE EVENT DATE: 20160218
